FAERS Safety Report 4829403-8 (Version None)
Quarter: 2005Q4

REPORT INFORMATION
  Report Type: 
  Country: None (occurrence: None)
  Receive Date: 20051028
  Receipt Date: 20050520
  Transmission Date: 20060501
  Serious: No
  Sender: FDA-Public Use
  Company Number: US134756

PATIENT
  Sex: Male

DRUGS (15)
  1. SENSIPAR [Suspect]
     Indication: HYPERPARATHYROIDISM SECONDARY
     Dosage: 30 MG, 1 IN 1 DAYS, PO
     Route: 048
     Dates: start: 20050307
  2. TACROLIMUS [Concomitant]
  3. ATORVASTATIN CALCIUM [Concomitant]
  4. MYCOPHENOLATE MOFETIL [Concomitant]
  5. PREDNISONE [Concomitant]
  6. DILTIAZEM HYDROCHLORIDE [Concomitant]
  7. ACYCLOVIR [Concomitant]
  8. TRIMETHOPRIM-SULFAMETHOXAZOLE [Concomitant]
  9. LISINOPRIL [Concomitant]
  10. METOPROLOL [Concomitant]
  11. ACETYLSALICYLIC ACID [Concomitant]
  12. ALLOPURINOL [Concomitant]
  13. ALENDRONATE SODIUM [Concomitant]
  14. INSULIN [Concomitant]
  15. RANITIDINE HYDROCHLORIDE [Concomitant]

REACTIONS (3)
  - DIARRHOEA [None]
  - DRUG LEVEL INCREASED [None]
  - TREMOR [None]
